FAERS Safety Report 21737642 (Version 1)
Quarter: 2022Q4

REPORT INFORMATION
  Report Type: Spontaneous
  Country: US (occurrence: US)
  Receive Date: 20221216
  Receipt Date: 20221216
  Transmission Date: 20230113
  Serious: No
  Sender: FDA-Public Use
  Company Number: US-AUROBINDO-AUR-APL-2022-025631

PATIENT
  Age: 70 Year
  Sex: Male
  Weight: 77 kg

DRUGS (1)
  1. FLECAINIDE ACETATE [Suspect]
     Active Substance: FLECAINIDE ACETATE
     Indication: Arrhythmia
     Dosage: UNK
     Route: 048
     Dates: start: 20220621

REACTIONS (7)
  - Anxiety [Unknown]
  - Malaise [Unknown]
  - Flushing [Unknown]
  - Limb discomfort [Unknown]
  - Head discomfort [Unknown]
  - Sensory disturbance [Unknown]
  - Product solubility abnormal [Unknown]
